FAERS Safety Report 10217249 (Version 1)
Quarter: 2014Q2

REPORT INFORMATION
  Report Type: Spontaneous
  Country: US (occurrence: US)
  Receive Date: 20140604
  Receipt Date: 20140604
  Transmission Date: 20141212
  Serious: Yes (Hospitalization)
  Sender: FDA-Public Use
  Company Number: US-ELI_LILLY_AND_COMPANY-US201405009223

PATIENT
  Sex: Male

DRUGS (2)
  1. AXIRON [Suspect]
     Indication: BLOOD TESTOSTERONE
     Dosage: UNK, UNKNOWN
     Route: 065
  2. ANDRODERM [Suspect]
     Indication: BLOOD TESTOSTERONE
     Dosage: UNK, UNKNOWN
     Route: 065

REACTIONS (3)
  - Embolism venous [Unknown]
  - Deep vein thrombosis [Unknown]
  - General physical health deterioration [Unknown]
